FAERS Safety Report 5028234-6 (Version None)
Quarter: 2006Q2

REPORT INFORMATION
  Report Type: 
  Country: None (occurrence: None)
  Receive Date: 20060503
  Receipt Date: 20060207
  Transmission Date: 20061013
  Serious: No
  Sender: FDA-Public Use
  Company Number: FACT0600073

PATIENT
  Age: 81 Year
  Sex: Male
  Weight: 87.5 kg

DRUGS (1)
  1. FACTIVE [Suspect]
     Indication: RESPIRATORY TRACT INFECTION BACTERIAL
     Dosage: 320 MG, QD, ORAL
     Route: 048
     Dates: start: 20060203, end: 20060101

REACTIONS (2)
  - CONSTIPATION [None]
  - MUSCULOSKELETAL CHEST PAIN [None]
